FAERS Safety Report 8484162-5 (Version None)
Quarter: 2012Q3

REPORT INFORMATION
  Report Type: 
  Country: None (occurrence: None)
  Receive Date: 20120703
  Receipt Date: 20120625
  Transmission Date: 20120928
  Serious: Yes (Hospitalization)
  Sender: FDA-Public Use
  Company Number: US-BAYER-2012-063292

PATIENT
  Age: 35 Year
  Sex: Female

DRUGS (6)
  1. TOPAMAX [Concomitant]
  2. CLARITIN [Concomitant]
     Dosage: 10 MG,Q (EVERY) HS
  3. TOPAMAX [Concomitant]
     Dosage: 50 MG, Q( EVERY) HS
  4. ZOMIG [Concomitant]
     Dosage: 5 MG, PRN
  5. YAZ [Suspect]
     Indication: CONTRACEPTION
  6. ZANTAC [Concomitant]
     Dosage: 150 MG, BID

REACTIONS (2)
  - DEEP VEIN THROMBOSIS [None]
  - PULMONARY EMBOLISM [None]
